FAERS Safety Report 6238894-X (Version None)
Quarter: 2009Q2

REPORT INFORMATION
  Report Type: 
  Country: None (occurrence: None)
  Receive Date: 20090617
  Receipt Date: 20090617
  Transmission Date: 20091009
  Serious: Yes (Life-Threatening)
  Sender: FDA-Public Use
  Company Number: None

PATIENT
  Age: 92 Year
  Sex: Male
  Weight: 77.1115 kg

DRUGS (4)
  1. AZITHROMYCIN [Suspect]
     Indication: PNEUMONIA
     Dosage: 500 MG ONCE IV DRIP SINGLE DOSE
     Route: 041
  2. AZITHROMYCIN [Suspect]
     Indication: SEPSIS
     Dosage: 500 MG ONCE IV DRIP SINGLE DOSE
     Route: 041
  3. LEVOFLOXACIN [Suspect]
     Indication: PNEUMONIA
     Dosage: 500 MG ONCE PO SINGLE DOSE
     Route: 048
  4. LEVOFLOXACIN [Suspect]
     Indication: SEPSIS
     Dosage: 500 MG ONCE PO SINGLE DOSE
     Route: 048

REACTIONS (1)
  - TORSADE DE POINTES [None]
